FAERS Safety Report 8960753 (Version 1)
Quarter: 2012Q4

REPORT INFORMATION
  Report Type: 
  Country: CA (occurrence: CA)
  Receive Date: 20121213
  Receipt Date: 20121213
  Transmission Date: 20130627
  Serious: Yes (Death, Other)
  Sender: FDA-Public Use
  Company Number: PHHY2012CA114184

PATIENT
  Age: 72 Year
  Sex: Male

DRUGS (16)
  1. CICLOSPORIN [Suspect]
     Dosage: 60 mg q am and 50 mg q pm
  2. CICLOSPORIN [Interacting]
     Dosage: 50 mg in morning and 25 mg in evening
  3. IMATINIB [Interacting]
     Dosage: 400 mg, per day
     Dates: start: 20041015
  4. IMATINIB [Interacting]
     Dosage: 300 mg, per day
  5. IMATINIB [Interacting]
     Dosage: 100 mg, per day
  6. IMATINIB [Interacting]
     Dosage: 200 mg, per day
  7. IMATINIB [Interacting]
     Dosage: 300 mg, per day
  8. PREDNISONE [Concomitant]
     Dosage: 10 mg, Q 2 days
  9. WARFARIN [Concomitant]
  10. FUROSEMIDE [Concomitant]
     Dosage: 40 mg, QD
  11. ALLOPURINOL [Concomitant]
     Dosage: 200 mg, QD
  12. ENALAPRIL [Concomitant]
     Dosage: 20 mg, QD
  13. ATORVASTATIN [Concomitant]
     Dosage: 10 mg, QD
  14. DILTIAZEM [Concomitant]
     Dosage: 240 mg, QD
  15. REPLAVITE                          /01775501/ [Concomitant]
  16. ACETYLSALICYLIC ACID [Concomitant]
     Indication: ATRIAL FIBRILLATION
     Dosage: 325 mg, QD

REACTIONS (5)
  - Cardiac arrest [Fatal]
  - Renal impairment [Unknown]
  - Blood creatinine increased [Unknown]
  - Drug interaction [Unknown]
  - Immunosuppressant drug level increased [Unknown]
